FAERS Safety Report 13285502 (Version 2)
Quarter: 2017Q1

REPORT INFORMATION
  Report Type: Spontaneous
  Country: US (occurrence: US)
  Receive Date: 20170301
  Receipt Date: 20170309
  Transmission Date: 20170428
  Serious: Yes (Hospitalization)
  Sender: FDA-Public Use
  Company Number: US-VIFOR (INTERNATIONAL) INC.-VIT-2017-01876

PATIENT
  Age: 60 Year
  Sex: Female

DRUGS (32)
  1. ROZEREM [Concomitant]
     Active Substance: RAMELTEON
  2. KEPPRA [Concomitant]
     Active Substance: LEVETIRACETAM
  3. ALLOPURINOL. [Concomitant]
     Active Substance: ALLOPURINOL
  4. IPRATROPIUM BROMIDE. [Concomitant]
     Active Substance: IPRATROPIUM BROMIDE
  5. VELTASSA [Suspect]
     Active Substance: PATIROMER
     Indication: HYPERKALAEMIA
     Route: 048
     Dates: start: 20160506
  6. SERTRALINE HYDROCHLORIDE. [Concomitant]
     Active Substance: SERTRALINE HYDROCHLORIDE
  7. PROMETHAZINE HYDROCHLORIDE. [Concomitant]
     Active Substance: PROMETHAZINE HYDROCHLORIDE
  8. KAYEXALATE [Concomitant]
     Active Substance: SODIUM POLYSTYRENE SULFONATE
  9. DOXYCYCLINE HYCLATE. [Concomitant]
     Active Substance: DOXYCYCLINE HYCLATE
  10. ACETYLSALICYLIC ACID [Concomitant]
     Active Substance: ASPIRIN
  11. ISOSORBIDE MONONITRATE. [Concomitant]
     Active Substance: ISOSORBIDE MONONITRATE
  12. OMEPRAZOLE. [Concomitant]
     Active Substance: OMEPRAZOLE
  13. LISINOPRIL. [Concomitant]
     Active Substance: LISINOPRIL
  14. LASIX [Concomitant]
     Active Substance: FUROSEMIDE
  15. PARACETAMOL/HYDROCODONE [Concomitant]
  16. HUMALOG [Concomitant]
     Active Substance: INSULIN LISPRO
  17. PHENYTEK [Concomitant]
     Active Substance: PHENYTOIN SODIUM
  18. NYSTATIN. [Concomitant]
     Active Substance: NYSTATIN
  19. SODIUM BICARBONATE. [Concomitant]
     Active Substance: SODIUM BICARBONATE
  20. PHENYTOIN SODIUM. [Concomitant]
     Active Substance: PHENYTOIN SODIUM
  21. FUROSEMIDE. [Concomitant]
     Active Substance: FUROSEMIDE
  22. MORPHINE SULFATE. [Concomitant]
     Active Substance: MORPHINE SULFATE
  23. SINGULAIR [Concomitant]
     Active Substance: MONTELUKAST SODIUM
  24. NITRO- DUR [Concomitant]
  25. LANTUS [Concomitant]
     Active Substance: INSULIN GLARGINE
  26. METOPROLOL TARTRATE. [Concomitant]
     Active Substance: METOPROLOL TARTRATE
  27. DILANTIN [Concomitant]
     Active Substance: PHENYTOIN
  28. PLAVIX [Concomitant]
     Active Substance: CLOPIDOGREL BISULFATE
  29. HYDRALAZINE HYDROCHLORIDE. [Concomitant]
     Active Substance: HYDRALAZINE HYDROCHLORIDE
  30. COREG [Concomitant]
     Active Substance: CARVEDILOL
  31. VIMPAT [Concomitant]
     Active Substance: LACOSAMIDE
  32. NITROSTAT [Concomitant]
     Active Substance: NITROGLYCERIN

REACTIONS (1)
  - Cardiac failure [Recovered/Resolved]

NARRATIVE: CASE EVENT DATE: 20170215
